FAERS Safety Report 18229451 (Version 1)
Quarter: 2020Q3

REPORT INFORMATION
  Report Type: Spontaneous
  Country: JP (occurrence: JP)
  Receive Date: 20200903
  Receipt Date: 20200903
  Transmission Date: 20201103
  Serious: Yes (Hospitalization)
  Sender: FDA-Public Use
  Company Number: JP-FERRINGPH-2020FE06006

PATIENT
  Age: 82 Year
  Sex: Female

DRUGS (7)
  1. MINIRINMELT [Suspect]
     Active Substance: DESMOPRESSIN ACETATE
     Indication: DIABETES INSIPIDUS
     Dosage: 30 UG ONCE DAILY
     Route: 065
     Dates: start: 20200811
  2. FUROSEMIDE. [Concomitant]
     Active Substance: FUROSEMIDE
     Dosage: 20 MG
     Route: 065
  3. THYRADIN S [Concomitant]
     Active Substance: LEVOTHYROXINE SODIUM
     Route: 065
  4. MINIRINMELT [Suspect]
     Active Substance: DESMOPRESSIN ACETATE
     Dosage: 60 UG
     Route: 065
     Dates: end: 20200810
  5. PREDNISOLONE. [Concomitant]
     Active Substance: PREDNISOLONE
     Dosage: 5 MG, EVERY 12 HOURS
     Route: 065
  6. MINIRINMELT [Suspect]
     Active Substance: DESMOPRESSIN ACETATE
     Dosage: 60 UG
     Route: 065
     Dates: end: 202006
  7. SPIRONOLACTONE. [Concomitant]
     Active Substance: SPIRONOLACTONE
     Dosage: 25 UG
     Route: 065

REACTIONS (4)
  - Wrong technique in product usage process [Unknown]
  - Hypernatraemia [Unknown]
  - Oedema [Unknown]
  - Hyponatraemia [Unknown]

NARRATIVE: CASE EVENT DATE: 202006
